FAERS Safety Report 5122530-X (Version None)
Quarter: 2006Q4

REPORT INFORMATION
  Report Type: 
  Country: None (occurrence: None)
  Receive Date: 20061004
  Receipt Date: 20061004
  Transmission Date: 20070319
  Serious: Yes (Hospitalization)
  Sender: FDA-Public Use
  Company Number: None

PATIENT
  Age: 54 Year
  Sex: Male
  Weight: 84.369 kg

DRUGS (12)
  1. OXANDRIN [Suspect]
     Indication: CHEMOTHERAPY
     Dosage: 10MG BID PO
     Route: 048
     Dates: start: 20060721
  2. OXANDRIN [Suspect]
     Indication: WEIGHT DECREASED
     Dosage: 10MG BID PO
     Route: 048
     Dates: start: 20060721
  3. HYDROXYZINE [Concomitant]
  4. SINGULAIR [Concomitant]
  5. PROZAC [Concomitant]
  6. CELEBREX [Concomitant]
  7. ADVAIR DISKUS 100/50 [Concomitant]
  8. FLONASE [Concomitant]
  9. FENTANYL [Concomitant]
  10. NORVASC [Concomitant]
  11. MMW [Concomitant]
  12. RESTORIL [Concomitant]

REACTIONS (1)
  - HYPOXIA [None]
